FAERS Safety Report 24919172 (Version 1)
Quarter: 2025Q1

REPORT INFORMATION
  Report Type: Spontaneous
  Country: CN (occurrence: CN)
  Receive Date: 20250204
  Receipt Date: 20250204
  Transmission Date: 20250409
  Serious: Yes (Death)
  Sender: JOHNSON AND JOHNSON
  Company Number: CN-JNJFOC-20250168216

PATIENT
  Age: 38 Year
  Sex: Male

DRUGS (7)
  1. INVEGA SUSTENNA [Suspect]
     Active Substance: PALIPERIDONE PALMITATE
     Indication: Schizophrenia
     Route: 065
     Dates: start: 20241121
  2. INVEGA SUSTENNA [Suspect]
     Active Substance: PALIPERIDONE PALMITATE
  3. INVEGA SUSTENNA [Suspect]
     Active Substance: PALIPERIDONE PALMITATE
  4. SODIUM BUTYRATE [Concomitant]
     Active Substance: SODIUM BUTYRATE
     Route: 048
     Dates: start: 20240121, end: 20250121
  5. TRIHEXYPHENIDYL HYDROCHLORIDE [Concomitant]
     Active Substance: TRIHEXYPHENIDYL HYDROCHLORIDE
     Route: 048
     Dates: start: 20240121, end: 20250121
  6. SULPIRIDE [Concomitant]
     Active Substance: SULPIRIDE
     Dates: start: 20240121, end: 20250121
  7. CLOZAPINE [Concomitant]
     Active Substance: CLOZAPINE
     Route: 048
     Dates: start: 20240121, end: 20250121

REACTIONS (1)
  - Cardio-respiratory arrest [Fatal]

NARRATIVE: CASE EVENT DATE: 20250121
